FAERS Safety Report 4402313-6 (Version None)
Quarter: 2004Q3

REPORT INFORMATION
  Report Type: 
  Country: None (occurrence: None)
  Receive Date: 20040720
  Receipt Date: 20040308
  Transmission Date: 20050211
  Serious: Yes (Other)
  Sender: FDA-Public Use
  Company Number: DE-GLAXOSMITHKLINE-D0043348A

PATIENT
  Age: 27 Year
  Sex: Female

DRUGS (3)
  1. VIANI FORTE [Suspect]
     Indication: ASTHMA
     Dosage: 1BLS TWICE PER DAY
     Route: 055
     Dates: start: 20000101
  2. FLUTIDE FORTE [Suspect]
     Indication: ASTHMA
     Dosage: .5MG TWICE PER DAY
     Route: 055
  3. AERIUS [Concomitant]
     Indication: HYPERSENSITIVITY
     Dosage: 5MG PER DAY
     Route: 048

REACTIONS (5)
  - ASTHMA [None]
  - EXANTHEM [None]
  - FLUID RETENTION [None]
  - MICTURITION URGENCY [None]
  - OEDEMA PERIPHERAL [None]
